FAERS Safety Report 18365672 (Version 1)
Quarter: 2020Q4

REPORT INFORMATION
  Report Type: Spontaneous
  Country: NO (occurrence: NO)
  Receive Date: 20201009
  Receipt Date: 20201009
  Transmission Date: 20210114
  Serious: Yes (Other)
  Sender: FDA-Public Use
  Company Number: NO-ABBVIE-20K-122-3596797-00

PATIENT
  Age: 67 Year
  Sex: Female

DRUGS (3)
  1. SOMAC [Concomitant]
     Active Substance: PANTOPRAZOLE SODIUM
     Indication: GASTROOESOPHAGEAL REFLUX DISEASE
     Dosage: 20 MG DAILY WHEN NEEDED
     Route: 048
  2. DERMOVAT [Concomitant]
     Active Substance: CLOBETASOL
     Indication: PSORIASIS
     Dosage: TWICE X 2 FOR THREE WEEKS, THEREAFTER 2-3 EVENINGS PER WEEK WHEN NEEDED
     Route: 003
  3. HUMIRA [Suspect]
     Active Substance: ADALIMUMAB
     Indication: PSORIASIS
     Route: 058
     Dates: end: 2019

REACTIONS (4)
  - Arrhythmia [Recovering/Resolving]
  - Congestive cardiomyopathy [Not Recovered/Not Resolved]
  - Myocarditis [Recovering/Resolving]
  - Cardiac failure [Recovering/Resolving]

NARRATIVE: CASE EVENT DATE: 2018
